FAERS Safety Report 21996836 (Version 1)
Quarter: 2023Q1

REPORT INFORMATION
  Report Type: Spontaneous
  Country: DE (occurrence: DE)
  Receive Date: 20230215
  Receipt Date: 20230215
  Transmission Date: 20230417
  Serious: Yes (Other)
  Sender: FDA-Public Use
  Company Number: DE-ROCHE-3260872

PATIENT
  Age: 70 Year
  Sex: Female

DRUGS (16)
  1. BENDAMUSTINE HYDROCHLORIDE [Suspect]
     Active Substance: BENDAMUSTINE HYDROCHLORIDE
     Indication: Follicular lymphoma
     Dosage: (WITH OBINUTUZUMAB)
     Route: 042
     Dates: start: 20211001, end: 20220201
  2. BENDAMUSTINE HYDROCHLORIDE [Suspect]
     Active Substance: BENDAMUSTINE HYDROCHLORIDE
     Indication: Diffuse large B-cell lymphoma
     Dosage: (POLATUZUMAB, BENDAMUSTINE AND RITUXIMAB)
     Route: 042
     Dates: start: 202210, end: 202211
  3. LENALIDOMIDE [Suspect]
     Active Substance: LENALIDOMIDE
     Indication: Diffuse large B-cell lymphoma
     Dosage: (TAFASITAMAB WITH LENALIDOMID)
     Route: 065
     Dates: start: 202211, end: 202212
  4. DEXAMETHASONE [Suspect]
     Active Substance: DEXAMETHASONE
     Indication: Diffuse large B-cell lymphoma
     Dosage: (R-DHAP) DHAP
     Route: 065
     Dates: start: 202208, end: 202209
  5. DOXORUBICIN HYDROCHLORIDE [Suspect]
     Active Substance: DOXORUBICIN HYDROCHLORIDE
     Indication: Diffuse large B-cell lymphoma
     Dosage: (R-CHOP)CHOP
     Route: 065
     Dates: start: 202205, end: 202207
  6. VINCRISTINE SULFATE [Suspect]
     Active Substance: VINCRISTINE SULFATE
     Indication: Diffuse large B-cell lymphoma
     Dosage: (R-CHOP)CHOP
     Route: 065
     Dates: start: 202205, end: 202207
  7. PREDNISONE [Suspect]
     Active Substance: PREDNISONE
     Indication: Diffuse large B-cell lymphoma
     Dosage: (R-CHOP)CHOP
     Route: 065
     Dates: start: 202205, end: 202207
  8. CISPLATIN [Suspect]
     Active Substance: CISPLATIN
     Indication: Diffuse large B-cell lymphoma
     Dosage: (R-DHAP) DHAP
     Route: 065
     Dates: start: 202208, end: 202209
  9. CYTARABINE [Suspect]
     Active Substance: CYTARABINE
     Indication: Diffuse large B-cell lymphoma
     Dosage: (R-DHAP) DHAP
     Route: 065
     Dates: start: 202208, end: 202209
  10. CYCLOPHOSPHAMIDE [Suspect]
     Active Substance: CYCLOPHOSPHAMIDE
     Indication: Diffuse large B-cell lymphoma
     Dosage: (R-CHOP)CHOP
     Route: 065
     Dates: start: 202205, end: 202207
  11. OBINUTUZUMAB [Suspect]
     Active Substance: OBINUTUZUMAB
     Indication: Follicular lymphoma
     Dosage: (WITH BENDAMUSTINE)
     Route: 042
     Dates: start: 20211001, end: 20220201
  12. POLATUZUMAB VEDOTIN [Suspect]
     Active Substance: POLATUZUMAB VEDOTIN
     Indication: Diffuse large B-cell lymphoma
     Dosage: (POLATUZUMAB, BENDAMUSTINE AND RITUXIMAB)
     Route: 065
     Dates: start: 202210, end: 202211
  13. RITUXIMAB [Suspect]
     Active Substance: RITUXIMAB
     Indication: Diffuse large B-cell lymphoma
     Dosage: (R-CHOP)
     Route: 065
     Dates: start: 202205, end: 202207
  14. RITUXIMAB [Suspect]
     Active Substance: RITUXIMAB
     Dosage: (R-DHAP)
     Route: 065
     Dates: start: 202208, end: 202209
  15. RITUXIMAB [Suspect]
     Active Substance: RITUXIMAB
     Dosage: (POLATUZUMAB, BENDAMUSTINE AND RITUXIMAB)
     Route: 065
     Dates: start: 202210, end: 202211
  16. TAFASITAMAB-CXIX [Suspect]
     Active Substance: TAFASITAMAB-CXIX
     Indication: Diffuse large B-cell lymphoma
     Dosage: (TAFASITAMAB WITH LENALIDOMID)
     Route: 065
     Dates: start: 202211, end: 202212

REACTIONS (7)
  - Malignant neoplasm progression [Not Recovered/Not Resolved]
  - Haemorrhage [Not Recovered/Not Resolved]
  - Hypercalcaemia [Not Recovered/Not Resolved]
  - Sepsis [Not Recovered/Not Resolved]
  - Alanine aminotransferase increased [Unknown]
  - Aspartate aminotransferase increased [Unknown]
  - Off label use [Unknown]

NARRATIVE: CASE EVENT DATE: 20221001
